FAERS Safety Report 8422607-7 (Version None)
Quarter: 2012Q2

REPORT INFORMATION
  Report Type: 
  Country: None (occurrence: None)
  Receive Date: 20120604
  Receipt Date: 20120525
  Transmission Date: 20120825
  Serious: Yes (Other)
  Sender: FDA-Public Use
  Company Number: AUR-APL-2012-01095

PATIENT
  Age: 26 Year
  Sex: Male
  Weight: 69.4003 kg

DRUGS (3)
  1. AMOXICILLIN [Suspect]
     Indication: CHRONIC SINUSITIS
     Dosage: 3 DOSAGE FORMS (1 DOSAGE FORMS, 3 IN 1 D)
     Dates: start: 20111205, end: 20111216
  2. AMOXICILLIN [Suspect]
     Indication: SINUSITIS
     Dosage: 3 DOSAGE FORMS (1 DOSAGE FORMS, 3 IN 1 D)
     Dates: start: 20111205, end: 20111216
  3. MECLIZINE [Concomitant]

REACTIONS (13)
  - TINNITUS [None]
  - ACOUSTIC NEUROMA [None]
  - CHRONIC SINUSITIS [None]
  - CONDITION AGGRAVATED [None]
  - SKIN DISCOLOURATION [None]
  - NEOPLASM MALIGNANT [None]
  - VIITH NERVE PARALYSIS [None]
  - CRYING [None]
  - PRODUCT COUNTERFEIT [None]
  - ADRENAL DISORDER [None]
  - DEPRESSION [None]
  - ABDOMINAL PAIN LOWER [None]
  - WEIGHT DECREASED [None]
